FAERS Safety Report 9335033 (Version 1)
Quarter: 2013Q2

REPORT INFORMATION
  Report Type: Spontaneous
  Country: FR (occurrence: FR)
  Receive Date: 20130606
  Receipt Date: 20130606
  Transmission Date: 20140414
  Serious: Yes (Hospitalization)
  Sender: FDA-Public Use
  Company Number: FR-FRI-1000045689

PATIENT
  Age: 76 Year
  Sex: Female

DRUGS (9)
  1. MILNACIPRAN [Suspect]
     Indication: DEPRESSION
     Dosage: 50 MG
     Route: 048
     Dates: end: 20120815
  2. LYSANXIA [Suspect]
     Indication: ANXIETY
     Dosage: 10 MG
     Route: 048
     Dates: end: 20120820
  3. EFFEXOR [Suspect]
     Indication: DEPRESSION
     Dosage: 37.5 MG
     Route: 048
     Dates: start: 201208
  4. FEMARA [Concomitant]
  5. STALEVO [Concomitant]
  6. GUTRON [Concomitant]
  7. CACIT D3 [Concomitant]
  8. DAFALGAN [Concomitant]
  9. DUPHALAC [Concomitant]

REACTIONS (1)
  - Confusional state [Unknown]
